FAERS Safety Report 5430014-4 (Version None)
Quarter: 2007Q3

REPORT INFORMATION
  Report Type: 
  Country: None (occurrence: None)
  Receive Date: 20070827
  Receipt Date: 20070817
  Transmission Date: 20080115
  Serious: Yes (Other)
  Sender: FDA-Public Use
  Company Number: 2007JP003878

PATIENT
  Age: 70 Year
  Sex: Female

DRUGS (6)
  1. FUNGUARD(MICAFUNGIN) INJECTION [Suspect]
  2. CEFZON(CEFDINIR) FORMULATION UNKNOWN [Suspect]
  3. ACLCINON(ACLARUBICIN HYDROCHLORIDE) INJECTION [Suspect]
  4. TARGOCID [Suspect]
  5. ZOLPIDEM TARTRATE [Suspect]
     Dosage: ORAL
     Route: 048
  6. DOGMATYL(SULPIRIDE) FORMULATION UNKNOWN [Suspect]

REACTIONS (1)
  - LEUKOENCEPHALOPATHY [None]
